FAERS Safety Report 4333841-X (Version None)
Quarter: 2004Q2

REPORT INFORMATION
  Report Type: 
  Country: None (occurrence: None)
  Receive Date: 20040402
  Receipt Date: 20040322
  Transmission Date: 20050107
  Serious: Yes (Disabling)
  Sender: FDA-Public Use
  Company Number: 2003036888

PATIENT
  Age: 66 Year
  Sex: Female

DRUGS (9)
  1. LIPITOR [Suspect]
     Indication: BLOOD CHOLESTEROL INCREASED
     Dosage: 40 MG
  2. ROFECOXIB [Suspect]
     Indication: ILL-DEFINED DISORDER
  3. PREDNISONE [Suspect]
     Indication: ILL-DEFINED DISORDER
  4. POTASSIUM (POTASSIUM) [Concomitant]
  5. AMLODIPINE BESYLATE [Concomitant]
  6. DYAZIDE [Concomitant]
  7. NARINE REPETABS (PSEUDOEPHEDRINE SULFATE, LORATADINE) [Concomitant]
  8. ESOMEPRAZOLE (ESOMEPRAZOLE) [Concomitant]
  9. LEVOTHYROXINE SODIUM [Concomitant]

REACTIONS (12)
  - ARTHRALGIA [None]
  - ASTHENIA [None]
  - BLOOD POTASSIUM DECREASED [None]
  - BLOOD SODIUM DECREASED [None]
  - CONSTIPATION [None]
  - DIFFICULTY IN WALKING [None]
  - GAIT DISTURBANCE [None]
  - HYPOTHYROIDISM [None]
  - MUSCLE ATROPHY [None]
  - MUSCULAR WEAKNESS [None]
  - MYOPATHY [None]
  - PAIN [None]
